FAERS Safety Report 4326318-9 (Version None)
Quarter: 2004Q1

REPORT INFORMATION
  Report Type: 
  Country: None (occurrence: None)
  Receive Date: 20040325
  Receipt Date: 20040316
  Transmission Date: 20041129
  Serious: Yes (Hospitalization)
  Sender: FDA-Public Use
  Company Number: 025

PATIENT
  Age: 18 Year
  Sex: Female

DRUGS (3)
  1. AMOXICILLIN AND CLAVULANATE POTASSIUM [Suspect]
     Indication: ANTIBACTERIAL PROPHYLAXIS
     Dosage: 4.4 G I.V.
     Route: 042
  2. AMOXICILLIN AND CLAVULANATE POTASSIUM [Suspect]
     Indication: PREOPERATIVE CARE
     Dosage: 4.4 G I.V.
     Route: 042
  3. CARBAMAZEPINE [Concomitant]

REACTIONS (1)
  - RENAL FAILURE ACUTE [None]
